FAERS Safety Report 26038976 (Version 3)
Quarter: 2025Q4

REPORT INFORMATION
  Report Type: Report from Study
  Country: OM (occurrence: None)
  Receive Date: 20251113
  Receipt Date: 20251226
  Transmission Date: 20260118
  Serious: Yes (Other)
  Sender: CHIESI
  Company Number: OM-CHIESI-2025CHF07936

PATIENT
  Age: 14 Year
  Sex: Male

DRUGS (1)
  1. BIRCH BARK\HERBALS [Suspect]
     Active Substance: BIRCH BARK\HERBALS
     Indication: Epidermolysis bullosa
     Dosage: UNK, PRN
     Route: 048
     Dates: start: 20250515, end: 20251103

REACTIONS (2)
  - Wound complication [Recovered/Resolved]
  - Product complaint [Recovered/Resolved]

NARRATIVE: CASE EVENT DATE: 20250515
